FAERS Safety Report 21727129 (Version 1)
Quarter: 2022Q4

REPORT INFORMATION
  Report Type: Spontaneous
  Country: US (occurrence: None)
  Receive Date: 20221213
  Receipt Date: 20221213
  Transmission Date: 20230113
  Serious: Yes (Hospitalization, Disabling)
  Sender: FDA-Public Use
  Company Number: None

PATIENT
  Age: 77 Year
  Sex: Male

DRUGS (23)
  1. REPATHA [Suspect]
     Active Substance: EVOLOCUMAB
     Indication: Hyperlipidaemia
     Dosage: FREQUENCY : EVERY OTHER WEEK;?
     Route: 058
  2. CALCIUM + MAGNESIUM [Concomitant]
  3. DOCUSATE SOD [Concomitant]
  4. FLUTICASONE [Concomitant]
     Active Substance: FLUTICASONE
  5. HUMALOG [Concomitant]
     Active Substance: INSULIN LISPRO
  6. LYSINE [Concomitant]
     Active Substance: LYSINE
  7. METHOTREXATE [Concomitant]
     Active Substance: METHOTREXATE
  8. VITAMINS [Concomitant]
     Active Substance: VITAMINS
  9. NEXIUM [Concomitant]
     Active Substance: ESOMEPRAZOLE MAGNESIUM
  10. POTASSIUM [Concomitant]
     Active Substance: POTASSIUM
  11. TEMAZEPAM [Concomitant]
     Active Substance: TEMAZEPAM
  12. VITAMIN B-2 [Concomitant]
  13. PYRIDOXINE [Concomitant]
     Active Substance: PYRIDOXINE
  14. VITAMIN C [Concomitant]
     Active Substance: ASCORBIC ACID
  15. VITAMIN D [Concomitant]
     Active Substance: VITAMIN D NOS
  16. VITAMIN E [Concomitant]
     Active Substance: .ALPHA.-TOCOPHEROL
  17. WARFARIN [Concomitant]
     Active Substance: WARFARIN
  18. ZINC [Concomitant]
     Active Substance: ZINC
  19. HYDROXYCHLOROQUINE [Concomitant]
     Active Substance: HYDROXYCHLOROQUINE
  20. DYMISTA [Concomitant]
     Active Substance: AZELASTINE HYDROCHLORIDE\FLUTICASONE PROPIONATE
  21. PREDNISONE [Concomitant]
     Active Substance: PREDNISONE
  22. RASUVO [Concomitant]
     Active Substance: METHOTREXATE SODIUM
  23. ALLEGRA [Concomitant]
     Active Substance: FEXOFENADINE HYDROCHLORIDE

REACTIONS (2)
  - Infection [None]
  - Therapy interrupted [None]

NARRATIVE: CASE EVENT DATE: 20221128
